FAERS Safety Report 11124352 (Version 1)
Quarter: 2015Q2

REPORT INFORMATION
  Report Type: Spontaneous
  Country: US (occurrence: None)
  Receive Date: 20150518
  Receipt Date: 20150518
  Transmission Date: 20150821
  Serious: Yes (Hospitalization)
  Sender: FDA-Public Use
  Company Number: FK201502245

PATIENT
  Age: 73 Year
  Sex: Female

DRUGS (4)
  1. VELCADE [Suspect]
     Active Substance: BORTEZOMIB
     Indication: PLASMA CELL MYELOMA
  2. ZOLEDRONIC ACID (MANUFACTURER UNKNOWN) (ZOLEDRONIC ACID) (ZOLEDRONIC ACID) [Suspect]
     Active Substance: ZOLEDRONIC ACID
     Indication: PLASMA CELL MYELOMA
  3. REVLIMID [Suspect]
     Active Substance: LENALIDOMIDE
     Indication: PLASMA CELL MYELOMA
     Dosage: 1 D
  4. DEXAMETHASONE INJECTION (MANUFACTURER UNKNOWN) (DEXAMETHASONE SODIUM PHOSPHATE) (DEXAMETHASONE SODIUM PHOSPHATE) [Suspect]
     Active Substance: DEXAMETHASONE SODIUM PHOSPHATE
     Indication: PLASMA CELL MYELOMA
     Dosage: 1 WK

REACTIONS (8)
  - Cardiac arrest [None]
  - Acute kidney injury [None]
  - Hypocalcaemia [None]
  - Generalised tonic-clonic seizure [None]
  - Febrile neutropenia [None]
  - Pulmonary oedema [None]
  - Cardiomegaly [None]
  - Pancytopenia [None]
